FAERS Safety Report 7799372-X (Version None)
Quarter: 2011Q4

REPORT INFORMATION
  Report Type: 
  Country: None (occurrence: None)
  Receive Date: 20111006
  Receipt Date: 20110923
  Transmission Date: 20120403
  Serious: No
  Sender: FDA-Public Use
  Company Number: US-B.I. PHARMACEUTICALS,INC./RIDGEFIELD-2011-BP-21235BP

PATIENT
  Sex: Female

DRUGS (4)
  1. PRADAXA [Suspect]
     Indication: HYPERTENSION
     Dosage: 150 MG
     Route: 048
  2. PRADAXA [Suspect]
     Indication: ATRIAL FIBRILLATION
     Dosage: 300 MG
     Route: 048
     Dates: start: 20110301, end: 20110829
  3. SORBITOL 50PC INJ [Suspect]
  4. ASPARTAME [Suspect]

REACTIONS (7)
  - TONGUE DISCOLOURATION [None]
  - GLOSSODYNIA [None]
  - OROPHARYNGEAL PAIN [None]
  - GINGIVAL BLEEDING [None]
  - DRY MOUTH [None]
  - CANDIDIASIS [None]
  - DEHYDRATION [None]
